FAERS Safety Report 14471726 (Version 2)
Quarter: 2018Q1

REPORT INFORMATION
  Report Type: Spontaneous
  Country: CN (occurrence: CN)
  Receive Date: 20180131
  Receipt Date: 20180209
  Transmission Date: 20180509
  Serious: Yes (Other)
  Sender: FDA-Public Use
  Company Number: CN-IMPAX LABORATORIES, INC-2018-IPXL-00243

PATIENT
  Age: 32 Year
  Sex: Female

DRUGS (3)
  1. EPIRUBICIN HYDROCHLORIDE. [Suspect]
     Active Substance: EPIRUBICIN HYDROCHLORIDE
     Indication: PRODUCT USE ISSUE
  2. PACLITAXEL. [Suspect]
     Active Substance: PACLITAXEL
     Indication: INVASIVE DUCTAL BREAST CARCINOMA
     Dosage: 80 MG/M2 (DAY 1 WITH EPIRUBICIN), 8, 15 AND CYCLED EVERY 21 DAYS); ONE CYCLE
     Route: 065
  3. EPIRUBICIN HYDROCHLORIDE. [Suspect]
     Active Substance: EPIRUBICIN HYDROCHLORIDE
     Indication: INVASIVE DUCTAL BREAST CARCINOMA
     Dosage: 80 MG/M2, DAY 1; ONE CYCLE
     Route: 065

REACTIONS (5)
  - Premature baby [Unknown]
  - Product use issue [Unknown]
  - Maternal exposure during pregnancy [Unknown]
  - Bone marrow failure [Recovered/Resolved]
  - Premature labour [Unknown]
